FAERS Safety Report 9621542 (Version 2)
Quarter: 2017Q2

REPORT INFORMATION
  Report Type: Spontaneous
  Country: CA (occurrence: CA)
  Receive Date: 20131015
  Receipt Date: 20170529
  Transmission Date: 20170830
  Serious: No
  Sender: FDA-Public Use
  Company Number: CA-009507513-1310CAN001336

PATIENT
  Age: 23 Year
  Sex: Male
  Weight: 83.9 kg

DRUGS (2)
  1. VALPROIC ACID. [Concomitant]
     Active Substance: VALPROIC ACID
     Dosage: 1500 UNK, HS
     Route: 048
  2. SAPHRIS [Suspect]
     Active Substance: ASENAPINE MALEATE
     Indication: BIPOLAR I DISORDER
     Dosage: 10 MG, BID
     Route: 060
     Dates: start: 20121115

REACTIONS (2)
  - Glossodynia [Unknown]
  - Tongue oedema [Unknown]

NARRATIVE: CASE EVENT DATE: 20130201
